FAERS Safety Report 4547199-4 (Version None)
Quarter: 2005Q1

REPORT INFORMATION
  Report Type: 
  Country: None (occurrence: None)
  Receive Date: 20050107
  Receipt Date: 20041112
  Transmission Date: 20050727
  Serious: Yes (Hospitalization, Disabling, Other)
  Sender: FDA-Public Use
  Company Number: JP-NOVOPROD-240493

PATIENT
  Age: 33 Year
  Sex: Male
  Weight: 80 kg

DRUGS (5)
  1. NOVOLOG [Suspect]
     Indication: DIABETES MELLITUS
     Dosage: 24 IU, QD
     Dates: start: 20041105, end: 20041111
  2. HUMULIN R [Concomitant]
     Indication: DIABETES MELLITUS
     Dosage: 40 IU - 50 IU DAILY
     Route: 058
     Dates: start: 20041102, end: 20041105
  3. HUMULIN R [Concomitant]
     Dates: start: 20041111
  4. SOLITA T [Concomitant]
     Indication: RHABDOMYOLYSIS
     Dosage: 2000 ML, UNK
     Route: 042
     Dates: start: 20041102
  5. ISOTONIC SOLUTIONS [Concomitant]
     Indication: RHABDOMYOLYSIS
     Dosage: 1000 ML, UNK
     Route: 042
     Dates: start: 20041103

REACTIONS (4)
  - ALANINE AMINOTRANSFERASE INCREASED [None]
  - ASPARTATE AMINOTRANSFERASE INCREASED [None]
  - HEPATIC FUNCTION ABNORMAL [None]
  - HEPATITIS C POSITIVE [None]
